FAERS Safety Report 8138628-8 (Version None)
Quarter: 2012Q1

REPORT INFORMATION
  Report Type: 
  Country: None (occurrence: None)
  Receive Date: 20120215
  Receipt Date: 20120131
  Transmission Date: 20120608
  Serious: Yes (Death)
  Sender: FDA-Public Use
  Company Number: US-ENDO PHARMACEUTICALS INC.-PMVC20110001

PATIENT
  Age: 3 Month
  Sex: Female

DRUGS (1)
  1. PROMETHAZINE VC W/CODEINE [Suspect]
     Indication: ACCIDENTAL EXPOSURE
     Dosage: UNKNOWN
     Route: 048
     Dates: start: 20110301, end: 20110301

REACTIONS (2)
  - DEATH [None]
  - ACCIDENTAL EXPOSURE [None]
